FAERS Safety Report 5165000-5 (Version None)
Quarter: 2006Q4

REPORT INFORMATION
  Report Type: 
  Country: None (occurrence: None)
  Receive Date: 20061205
  Receipt Date: 20061121
  Transmission Date: 20070319
  Serious: Yes (Hospitalization)
  Sender: FDA-Public Use
  Company Number: DE-BOEHRINGER INGELHEIM GMBH, GERMANY-2006-DE-06176DE

PATIENT
  Sex: Female
  Weight: 11.1 kg

DRUGS (2)
  1. MICARDIS HCT [Suspect]
     Dosage: TELMISARTAN 80 MG/HCT 12.5 MG
     Route: 048
  2. CONCOR [Suspect]
     Route: 048

REACTIONS (1)
  - MEDICATION ERROR [None]
